FAERS Safety Report 9695561 (Version 1)
Quarter: 2013Q4

REPORT INFORMATION
  Report Type: Spontaneous
  Country: US (occurrence: US)
  Receive Date: 20131119
  Receipt Date: 20131119
  Transmission Date: 20140711
  Serious: No
  Sender: FDA-Public Use
  Company Number: US-PFIZER INC-2013326181

PATIENT
  Age: 83 Year
  Sex: Female
  Weight: 81.63 kg

DRUGS (3)
  1. ADVIL [Suspect]
     Indication: BACK DISORDER
     Dosage: 200 MG, TWO-THREE TIMES A DAY
     Route: 048
     Dates: start: 20131111
  2. ADVIL [Suspect]
     Indication: PAIN
  3. PRINIVIL [Concomitant]
     Indication: HYPERTENSION
     Dosage: UNK

REACTIONS (2)
  - Drug ineffective [Unknown]
  - Drug effect incomplete [Unknown]
